FAERS Safety Report 9953353 (Version 2)
Quarter: 2014Q1

REPORT INFORMATION
  Report Type: Report from Study
  Country: US (occurrence: US)
  Receive Date: 20140304
  Receipt Date: 20140304
  Transmission Date: 20141002
  Serious: No
  Sender: FDA-Public Use
  Company Number: US-ABBVIE-13P-163-1072591-00

PATIENT
  Age: 51 Year
  Sex: Female

DRUGS (19)
  1. HUMIRA [Suspect]
     Indication: CROHN^S DISEASE
     Route: 058
     Dates: start: 20130327, end: 20130327
  2. HUMIRA [Suspect]
     Route: 058
  3. 6-MP [Concomitant]
     Indication: COLITIS ULCERATIVE
  4. FOLIC ACID [Concomitant]
     Indication: COLITIS ULCERATIVE
     Dosage: DAILY
  5. GABAPENTIN [Concomitant]
     Indication: NEURALGIA
  6. DILTIAZEM [Concomitant]
     Indication: HYPERTENSION
  7. HYDROCHLOROTHIAZIDE [Concomitant]
     Indication: HYPERTENSION
  8. LISINOPRIL [Concomitant]
     Indication: HYPERTENSION
  9. LISINOPRIL [Concomitant]
  10. PLAVIX [Concomitant]
     Indication: COAGULOPATHY
  11. PAROXETINE [Concomitant]
     Indication: ANXIETY
  12. PAROXETINE [Concomitant]
     Indication: DEPRESSION
  13. METFORMIN [Concomitant]
     Indication: DIABETES MELLITUS
  14. GLIPIZIDE [Concomitant]
     Indication: DIABETES MELLITUS
  15. INSULIN [Concomitant]
     Indication: DIABETES MELLITUS
  16. LEVEMIR [Concomitant]
     Indication: DIABETES MELLITUS
  17. SIMVASTATIN [Concomitant]
     Indication: BLOOD CHOLESTEROL INCREASED
  18. UNKNOWN ALLERGY SHOT [Concomitant]
     Indication: PRODUCT USED FOR UNKNOWN INDICATION
  19. UNKNOWN STEROID SHOT [Concomitant]
     Indication: PRODUCT USED FOR UNKNOWN INDICATION

REACTIONS (8)
  - Flushing [Not Recovered/Not Resolved]
  - Fatigue [Not Recovered/Not Resolved]
  - Agitation [Not Recovered/Not Resolved]
  - Abdominal pain [Not Recovered/Not Resolved]
  - Chest pain [Not Recovered/Not Resolved]
  - Malaise [Unknown]
  - Nervousness [Unknown]
  - Irritability [Unknown]
